FAERS Safety Report 23133518 (Version 1)
Quarter: 2023Q4

REPORT INFORMATION
  Report Type: Spontaneous
  Country: IT (occurrence: IT)
  Receive Date: 20231101
  Receipt Date: 20231101
  Transmission Date: 20240110
  Serious: Yes (Other)
  Sender: FDA-Public Use
  Company Number: None

PATIENT
  Age: 77 Year
  Sex: Male
  Weight: 75 kg

DRUGS (15)
  1. DOCETAXEL [Suspect]
     Active Substance: DOCETAXEL
     Indication: Lung adenocarcinoma recurrent
     Dosage: 100 MILLIGRAM, IN 60 MINUTES
     Route: 042
     Dates: start: 20230911, end: 20230911
  2. BAQSIMI [Concomitant]
     Active Substance: GLUCAGON
     Indication: Hypoglycaemia
     Dosage: 3 MILLIGRAM, QD
     Route: 055
     Dates: start: 2023
  3. BAQSIMI [Concomitant]
     Active Substance: GLUCAGON
     Indication: Type 2 diabetes mellitus
  4. BISOPROLOL [Concomitant]
     Active Substance: BISOPROLOL\BISOPROLOL FUMARATE
     Indication: Hypertension
     Dosage: 1.25 MILLIGRAM, QD
     Route: 048
     Dates: start: 2023
  5. DEXAMETHASONE [Concomitant]
     Active Substance: DEXAMETHASONE
     Indication: Chemotherapy side effect prophylaxis
     Dosage: 8 MILLIGRAM, EVERY THREE WEEKS
     Route: 042
     Dates: start: 20230911
  6. DEXAMETHASONE [Concomitant]
     Active Substance: DEXAMETHASONE
     Indication: Steroid therapy
  7. GRANISETRON [Concomitant]
     Active Substance: GRANISETRON
     Indication: Vomiting
     Dosage: 3 MILLIGRAM, ONCE EVERY THREE WEEKS
     Route: 042
     Dates: start: 20230911
  8. GRANISETRON [Concomitant]
     Active Substance: GRANISETRON
     Indication: Chemotherapy side effect prophylaxis
  9. METOCLOPRAMIDE [Concomitant]
     Active Substance: METOCLOPRAMIDE
     Indication: Nausea
     Dosage: 10 MILLIGRAM, ONCE EVERY THREE WEEKS
     Route: 042
     Dates: start: 20230911
  10. DIHYDROCODEINE THIOCYANATE [Concomitant]
     Active Substance: DIHYDROCODEINE THIOCYANATE
     Indication: Cough
     Dosage: 10.25 MG/ML
     Route: 048
     Dates: start: 2023
  11. AMLODIPINE\RAMIPRIL [Concomitant]
     Active Substance: AMLODIPINE\RAMIPRIL
     Indication: Hypertension
     Dosage: 10MG + 5MG
     Route: 048
     Dates: start: 2023
  12. OXATOMIDE [Concomitant]
     Active Substance: OXATOMIDE
     Indication: Antiallergic therapy
     Dosage: 30 MILLIGRAM, 1 TABLET IN THE MORNING BEFORE THERAPY AND 1 TABLET IN THE EVENING AFTER THERAPY
     Route: 048
     Dates: start: 20230911
  13. OXATOMIDE [Concomitant]
     Active Substance: OXATOMIDE
     Indication: Chemotherapy side effect prophylaxis
  14. ATORVASTATIN [Concomitant]
     Active Substance: ATORVASTATIN
     Indication: Hypercholesterolaemia
     Dosage: 20 MILLIGRAM, QD
     Route: 048
     Dates: start: 2023
  15. TOUJEO [Concomitant]
     Active Substance: INSULIN GLARGINE
     Indication: Type 2 diabetes mellitus
     Dosage: UNK
     Route: 058
     Dates: start: 2023

REACTIONS (4)
  - Melaena [Recovering/Resolving]
  - Dysgeusia [Not Recovered/Not Resolved]
  - Abdominal pain [Recovering/Resolving]
  - Alopecia [Not Recovered/Not Resolved]

NARRATIVE: CASE EVENT DATE: 20230914
